FAERS Safety Report 24820204 (Version 1)
Quarter: 2025Q1

REPORT INFORMATION
  Report Type: Spontaneous
  Country: US (occurrence: US)
  Receive Date: 20250108
  Receipt Date: 20250108
  Transmission Date: 20250409
  Serious: No
  Sender: ABBVIE
  Company Number: US-ABBVIE-6073776

PATIENT
  Sex: Female

DRUGS (1)
  1. ESTRADIOL [Suspect]
     Active Substance: ESTRADIOL
     Indication: Oestrogen therapy
     Route: 067

REACTIONS (4)
  - Application site erythema [Recovered/Resolved]
  - Vulvovaginal discomfort [Unknown]
  - Vulvovaginal discomfort [Recovered/Resolved]
  - Application site erythema [Unknown]
